FAERS Safety Report 22144892 (Version 1)
Quarter: 2023Q1

REPORT INFORMATION
  Report Type: Spontaneous
  Country: HK (occurrence: HK)
  Receive Date: 20230328
  Receipt Date: 20230328
  Transmission Date: 20230418
  Serious: Yes (Other)
  Sender: FDA-Public Use
  Company Number: HK-ALKEM LABORATORIES LIMITED-HK-ALKEM-2023-03238

PATIENT

DRUGS (1)
  1. COLCHICINE [Suspect]
     Active Substance: COLCHICINE
     Indication: Product used for unknown indication
     Dosage: UNK
     Route: 065

REACTIONS (3)
  - Myelosuppression [Unknown]
  - Organising pneumonia [Unknown]
  - Overdose [Unknown]
